FAERS Safety Report 8616075-X (Version None)
Quarter: 2012Q3

REPORT INFORMATION
  Report Type: 
  Country: None (occurrence: None)
  Receive Date: 20120823
  Receipt Date: 20120808
  Transmission Date: 20120928
  Serious: Yes (Hospitalization, Other)
  Sender: FDA-Public Use
  Company Number: JP-ROCHE-1104460

PATIENT
  Age: 63 Year
  Sex: Male

DRUGS (4)
  1. HEPARIN SODIUM [Suspect]
     Indication: EMBOLIC STROKE
     Dosage: 10 KIU/DAY
  2. WARFARIN POTASSIUM [Concomitant]
     Route: 048
     Dates: start: 20110708
  3. ACTIVASE [Suspect]
     Indication: EMBOLIC STROKE
     Route: 042
     Dates: start: 20110603
  4. RADICUT [Suspect]
     Indication: EMBOLIC STROKE

REACTIONS (2)
  - HAEMORRHAGIC CEREBRAL INFARCTION [None]
  - EMBOLIC STROKE [None]
